FAERS Safety Report 18145762 (Version 1)
Quarter: 2020Q3

REPORT INFORMATION
  Report Type: Spontaneous
  Country: US (occurrence: US)
  Receive Date: 20200813
  Receipt Date: 20200813
  Transmission Date: 20201103
  Serious: Yes (Other)
  Sender: FDA-Public Use
  Company Number: US-ASTRAZENECA-2020SF01038

PATIENT
  Age: 75 Year
  Sex: Male

DRUGS (1)
  1. LYNPARZA [Suspect]
     Active Substance: OLAPARIB
     Indication: PROSTATE CANCER
     Route: 048
     Dates: start: 202002

REACTIONS (5)
  - Hypersensitivity [Unknown]
  - Myelodysplastic syndrome [Unknown]
  - White blood cell count decreased [Unknown]
  - Thrombocytopenia [Unknown]
  - Haemoglobin decreased [Unknown]
